FAERS Safety Report 8939348 (Version 2)
Quarter: 2013Q1

REPORT INFORMATION
  Report Type: Report from Study
  Country: CA (occurrence: CA)
  Receive Date: 20121203
  Receipt Date: 20130102
  Transmission Date: 20140127
  Serious: Yes (Hospitalization)
  Sender: FDA-Public Use
  Company Number: CA-JNJFOC-20121111291

PATIENT
  Age: 56 None
  Sex: Male

DRUGS (3)
  1. REMICADE [Suspect]
     Indication: CROHN^S DISEASE
     Route: 042
     Dates: start: 201208, end: 201208
  2. REMICADE [Suspect]
     Indication: CROHN^S DISEASE
     Route: 042
     Dates: start: 2010
  3. ANTIDEPRESSANT MEDICATION [Concomitant]
     Route: 065

REACTIONS (5)
  - Intestinal resection [Unknown]
  - Postoperative abscess [Unknown]
  - Confusional state [Unknown]
  - Delirium [Unknown]
  - Herpes zoster [Unknown]
